FAERS Safety Report 11838358 (Version 1)
Quarter: 2015Q4

REPORT INFORMATION
  Report Type: Spontaneous
  Country: FR (occurrence: FR)
  Receive Date: 20151215
  Receipt Date: 20151215
  Transmission Date: 20160305
  Serious: Yes (Other)
  Sender: FDA-Public Use
  Company Number: FR-MEDTRONIC-1045521

PATIENT
  Sex: Female

DRUGS (1)
  1. BACLOFEN UNKNOWN [Suspect]
     Active Substance: BACLOFEN
     Indication: ALCOHOLISM
     Dates: start: 201303

REACTIONS (2)
  - Maternal exposure during pregnancy [Recovered/Resolved]
  - Abortion induced [Recovered/Resolved]

NARRATIVE: CASE EVENT DATE: 20130901
